FAERS Safety Report 7237741-7 (Version None)
Quarter: 2011Q1

REPORT INFORMATION
  Report Type: 
  Country: None (occurrence: None)
  Receive Date: 20110121
  Receipt Date: 20110118
  Transmission Date: 20110831
  Serious: Yes (Death, Other)
  Sender: FDA-Public Use
  Company Number: PHHY2011CA04108

PATIENT
  Sex: Female

DRUGS (1)
  1. SANDOSTATIN LAR [Suspect]
     Indication: ASCITES
     Dosage: 20 MG, QMO
     Route: 030
     Dates: start: 20101217

REACTIONS (2)
  - APNOEA [None]
  - DEATH [None]
